FAERS Safety Report 9269483 (Version 2)
Quarter: 2013Q2

REPORT INFORMATION
  Report Type: Spontaneous
  Country: FR (occurrence: FR)
  Receive Date: 20130503
  Receipt Date: 20130513
  Transmission Date: 20140414
  Serious: Yes (Hospitalization, Other)
  Sender: FDA-Public Use
  Company Number: FR-PFIZER INC-2013136238

PATIENT
  Age: 88 Year
  Sex: Female

DRUGS (5)
  1. CORDARONE [Suspect]
     Dosage: 5 TIMES WEEKLY (DOSE: 0.7143 DF)
     Route: 048
     Dates: end: 20130326
  2. ZOFENIL DUO [Suspect]
     Dosage: 1 DF, 1X/DAY
     Route: 048
     Dates: end: 20130325
  3. SEROPLEX [Suspect]
     Dosage: 10 MG, DAILY
     Route: 048
     Dates: end: 20130325
  4. MOPRAL [Suspect]
     Dosage: 20 MG, DAILY
     Route: 048
     Dates: end: 20130325
  5. KARDEGIC [Concomitant]
     Dosage: UNK

REACTIONS (4)
  - Hyponatraemia [Recovered/Resolved]
  - Urinary retention [Unknown]
  - Alanine aminotransferase increased [Unknown]
  - Aspartate aminotransferase increased [Unknown]
